FAERS Safety Report 11282205 (Version 1)
Quarter: 2015Q3

REPORT INFORMATION
  Report Type: Spontaneous
  Country: US (occurrence: US)
  Receive Date: 20150720
  Receipt Date: 20150720
  Transmission Date: 20151125
  Serious: Yes (Death, Hospitalization)
  Sender: FDA-Public Use
  Company Number: US-CIPLA LTD.-2015US05691

PATIENT

DRUGS (7)
  1. CARBOPLATIN. [Suspect]
     Active Substance: CARBOPLATIN
     Indication: METASTASES TO BONE
  2. TOPOTECAN [Suspect]
     Active Substance: TOPOTECAN\TOPOTECAN HYDROCHLORIDE
     Indication: SMALL CELL CARCINOMA
     Dosage: 7 MG, SINGLE
  3. ETOSID [Suspect]
     Active Substance: ETOPOSIDE
     Indication: METASTASES TO BONE
  4. CARBOPLATIN. [Suspect]
     Active Substance: CARBOPLATIN
     Indication: SMALL CELL CARCINOMA
     Dosage: SIX CYCLES
     Route: 065
  5. ETOSID [Suspect]
     Active Substance: ETOPOSIDE
     Indication: SMALL CELL CARCINOMA
     Dosage: SIX CYCLES
     Route: 065
  6. TOPOTECAN [Suspect]
     Active Substance: TOPOTECAN\TOPOTECAN HYDROCHLORIDE
     Indication: METASTASES TO BONE
  7. PREDNISONE. [Concomitant]
     Active Substance: PREDNISONE
     Dosage: UNK
     Route: 048

REACTIONS (7)
  - Cardiac arrest [Unknown]
  - Tachypnoea [Unknown]
  - Metastases to spine [Unknown]
  - Disease progression [Unknown]
  - Respiratory failure [Fatal]
  - Back pain [Unknown]
  - Lung disorder [Unknown]
